FAERS Safety Report 8084298 (Version 2)
Quarter: 2013Q1

REPORT INFORMATION
  Report Type: Spontaneous
  Country: US (occurrence: US)
  Receive Date: 20110810
  Receipt Date: 20130218
  Transmission Date: 20140127
  Serious: Yes (Hospitalization)
  Sender: FDA-Public Use
  Company Number: US-GLAXOSMITHKLINE-A0903541A

PATIENT
  Age: 70 Year
  Sex: Female
  Weight: 102 kg

DRUGS (1)
  1. AVANDIA [Suspect]
     Indication: DIABETES MELLITUS
     Route: 048
     Dates: start: 19991027

REACTIONS (4)
  - Myocardial infarction [Not Recovered/Not Resolved]
  - Cardiac failure congestive [Unknown]
  - Coronary artery bypass [Unknown]
  - Angina unstable [Unknown]
